FAERS Safety Report 7072565-5 (Version None)
Quarter: 2010Q4

REPORT INFORMATION
  Report Type: 
  Country: None (occurrence: None)
  Receive Date: 20101029
  Receipt Date: 20100212
  Transmission Date: 20110411
  Serious: No
  Sender: FDA-Public Use
  Company Number: A0844262A

PATIENT
  Age: 56 Year
  Sex: Female

DRUGS (18)
  1. ADVAIR DISKUS 100/50 [Suspect]
     Indication: ASTHMA
     Dosage: 1PUFF TWICE PER DAY
     Route: 055
     Dates: start: 20050101, end: 20100205
  2. SINEMET CR [Concomitant]
  3. NEXIUM [Concomitant]
  4. SAVELLA [Concomitant]
  5. SYNTHROID [Concomitant]
  6. LASIX [Concomitant]
  7. COZAAR [Concomitant]
  8. SINGULAIR [Concomitant]
  9. NORVASC [Concomitant]
  10. POTASSIUM CHLORIDE [Concomitant]
  11. REQUIP XL [Concomitant]
  12. VITAMIN B-12 [Concomitant]
  13. NEURONTIN [Concomitant]
  14. STRATTERA [Concomitant]
  15. DOXEPIN HCL [Concomitant]
  16. NEUROGEL [Concomitant]
  17. PRISTIQ [Concomitant]
  18. NEBULIZER [Concomitant]

REACTIONS (1)
  - WHEEZING [None]
